FAERS Safety Report 21335402 (Version 1)
Quarter: 2022Q3

REPORT INFORMATION
  Report Type: Spontaneous
  Country: FR (occurrence: FR)
  Receive Date: 20220915
  Receipt Date: 20220915
  Transmission Date: 20221026
  Serious: Yes (Other)
  Sender: FDA-Public Use
  Company Number: None

PATIENT
  Age: 93 Year
  Sex: Male
  Weight: 64 kg

DRUGS (2)
  1. TRAMADOL HYDROCHLORIDE [Interacting]
     Active Substance: TRAMADOL HYDROCHLORIDE
     Indication: Back pain
     Dosage: DURATION : 6 DAYS
     Route: 065
     Dates: start: 20220209, end: 20220215
  2. FLUINDIONE [Interacting]
     Active Substance: FLUINDIONE
     Indication: Atrial fibrillation
     Dosage: ALTERNATELY 10/10/5MG  , STRENGTH : 20 MG, SCORED TABLET , FREQUENCY TIME : 1 DAY, THERAPY START DAT
     Route: 065
     Dates: end: 20220215

REACTIONS (2)
  - Coagulation time prolonged [Recovered/Resolved]
  - Drug interaction [Unknown]

NARRATIVE: CASE EVENT DATE: 20220215
